FAERS Safety Report 25628999 (Version 2)
Quarter: 2025Q3

REPORT INFORMATION
  Report Type: Spontaneous
  Country: US (occurrence: US)
  Receive Date: 20250731
  Receipt Date: 20250916
  Transmission Date: 20251021
  Serious: No
  Sender: SANOFI AVENTIS
  Company Number: US-SA-2025SA219241

PATIENT
  Age: 81 Year
  Sex: Female
  Weight: 77.27 kg

DRUGS (40)
  1. DUPIXENT [Suspect]
     Active Substance: DUPILUMAB
     Indication: Nasal polyps
     Dosage: 300 MG, QOW
     Route: 058
     Dates: start: 202507
  2. DUPIXENT [Suspect]
     Active Substance: DUPILUMAB
     Indication: Sinusitis
  3. DUPIXENT [Suspect]
     Active Substance: DUPILUMAB
     Indication: Asthma
  4. HYDROXYCHLOROQUINE SULFATE [Concomitant]
     Active Substance: HYDROXYCHLOROQUINE SULFATE
  5. GABAPENTIN [Concomitant]
     Active Substance: GABAPENTIN
  6. BUPROPION HYDROCHLORIDE [Concomitant]
     Active Substance: BUPROPION HYDROCHLORIDE
  7. FLONASE ALLERGY RELIEF [Concomitant]
     Active Substance: FLUTICASONE PROPIONATE
  8. CALCIUM [Concomitant]
     Active Substance: CALCIUM
  9. FLUVOXAMINE MALEATE [Concomitant]
     Active Substance: FLUVOXAMINE MALEATE
  10. HYDROXYZINE HYDROCHLORIDE [Concomitant]
     Active Substance: HYDROXYZINE HYDROCHLORIDE
  11. LIDOCAINE [Concomitant]
     Active Substance: LIDOCAINE
  12. MELATONIN [Concomitant]
     Active Substance: MELATONIN
  13. METHOCARBAMOL [Concomitant]
     Active Substance: METHOCARBAMOL
  14. ONDANSETRON HYDROCHLORIDE [Concomitant]
     Active Substance: ONDANSETRON HYDROCHLORIDE
  15. MUPIROCIN [Concomitant]
     Active Substance: MUPIROCIN
  16. MIRALAX [Concomitant]
     Active Substance: POLYETHYLENE GLYCOL 3350
  17. ONDANSETRON HYDROCHLORIDE [Concomitant]
     Active Substance: ONDANSETRON HYDROCHLORIDE
  18. OXYCONTIN [Concomitant]
     Active Substance: OXYCODONE HYDROCHLORIDE
  19. TRAZODONE HCL [Concomitant]
     Active Substance: TRAZODONE HYDROCHLORIDE
  20. SODIUM CHLORIDE [Concomitant]
     Active Substance: SODIUM CHLORIDE
  21. TRIAMCINOLONE ACETONIDE [Concomitant]
     Active Substance: TRIAMCINOLONE ACETONIDE
  22. PYRIDOXINE [Concomitant]
     Active Substance: PYRIDOXINE
  23. COLLAGEN [Concomitant]
     Active Substance: COLLAGEN
  24. VITAMINS [Concomitant]
     Active Substance: VITAMINS
  25. FISH OIL [Concomitant]
     Active Substance: FISH OIL
  26. VITAMIN B12 [Concomitant]
     Active Substance: CYANOCOBALAMIN
  27. MAGNESIUM OXIDE [Concomitant]
     Active Substance: MAGNESIUM OXIDE
  28. PENICILLIN [Concomitant]
     Active Substance: PENICILLIN
  29. PROTEIN [Concomitant]
     Active Substance: PROTEIN
  30. PROBIOTICS NOS [Concomitant]
     Active Substance: PROBIOTICS NOS
  31. VITAMIN C [Concomitant]
     Active Substance: ASCORBIC ACID
  32. HERBALS\TURMERIC [Concomitant]
     Active Substance: HERBALS\TURMERIC
  33. EPLERENONE [Concomitant]
     Active Substance: EPLERENONE
  34. SENNA [Concomitant]
     Active Substance: SENNOSIDES
  35. VITAMIN D [Concomitant]
     Active Substance: VITAMIN D NOS
  36. LUBIPROSTONE [Concomitant]
     Active Substance: LUBIPROSTONE
  37. SALINE [Concomitant]
     Active Substance: SODIUM CHLORIDE
  38. ZYRTEC [Concomitant]
     Active Substance: CETIRIZINE HYDROCHLORIDE
  39. TYLENOL [Concomitant]
     Active Substance: ACETAMINOPHEN
  40. DILTIAZEM [Concomitant]
     Active Substance: DILTIAZEM

REACTIONS (5)
  - Blood pressure increased [Unknown]
  - Dyspnoea [Unknown]
  - Fatigue [Unknown]
  - Insomnia [Unknown]
  - Product use in unapproved indication [Unknown]

NARRATIVE: CASE EVENT DATE: 20250101
